FAERS Safety Report 10283853 (Version 2)
Quarter: 2014Q3

REPORT INFORMATION
  Report Type: Spontaneous
  Country: IT (occurrence: IT)
  Receive Date: 20140708
  Receipt Date: 20140722
  Transmission Date: 20150326
  Serious: Yes (Hospitalization)
  Sender: FDA-Public Use
  Company Number: IT-BAYER-2014-100150

PATIENT
  Age: 74 Year
  Sex: Male

DRUGS (6)
  1. CIPROFLOXACIN. [Suspect]
     Active Substance: CIPROFLOXACIN
     Indication: URINARY TRACT INFECTION
     Dosage: 250 MG, BID
     Route: 048
     Dates: start: 20140518, end: 20140526
  2. CIPROFLOXACIN. [Suspect]
     Active Substance: CIPROFLOXACIN
     Indication: URINARY TRACT INFECTION
     Dosage: UNK
  3. LASIX [Suspect]
     Active Substance: FUROSEMIDE
     Indication: RENAL FAILURE CHRONIC
     Dosage: UNK
     Route: 048
     Dates: start: 20120101, end: 20140602
  4. CIPROFLOXACIN. [Suspect]
     Active Substance: CIPROFLOXACIN
     Indication: URINARY TRACT INFECTION
     Dosage: 750 MG, BID
     Dates: start: 20140527, end: 20140527
  5. LASIX [Suspect]
     Active Substance: FUROSEMIDE
     Indication: RENAL FAILURE CHRONIC
     Route: 048
  6. KEPPRA [Suspect]
     Active Substance: LEVETIRACETAM
     Indication: EPILEPSY
     Dosage: DAILY DOSE 1000 MG
     Route: 048
     Dates: start: 20120101

REACTIONS (3)
  - Hyponatraemia [Recovering/Resolving]
  - Epilepsy [Recovering/Resolving]
  - Cardiopulmonary failure [Recovering/Resolving]

NARRATIVE: CASE EVENT DATE: 20140527
